FAERS Safety Report 9100205 (Version 3)
Quarter: 2013Q2

REPORT INFORMATION
  Report Type: Spontaneous
  Country: US (occurrence: US)
  Receive Date: 20130215
  Receipt Date: 20130501
  Transmission Date: 20140414
  Serious: No
  Sender: FDA-Public Use
  Company Number: US-PFIZER INC-2013060004

PATIENT
  Age: 62 Year
  Sex: Male

DRUGS (3)
  1. INLYTA [Suspect]
     Indication: RENAL CANCER
     Dosage: 5 MG, 2X/DAY
     Dates: start: 201207
  2. INLYTA [Suspect]
     Dosage: UNK
  3. INLYTA [Suspect]
     Dosage: 5 MG, 2X/DAY

REACTIONS (6)
  - Hyperaesthesia [Unknown]
  - Dry throat [Unknown]
  - Constipation [Unknown]
  - Fatigue [Unknown]
  - Dry skin [Unknown]
  - Dry skin [Recovering/Resolving]
